FAERS Safety Report 23639691 (Version 1)
Quarter: 2024Q1

REPORT INFORMATION
  Report Type: Report from Study
  Country: IT (occurrence: IT)
  Receive Date: 20240316
  Receipt Date: 20240316
  Transmission Date: 20240410
  Serious: Yes (Other)
  Sender: FDA-Public Use
  Company Number: None

PATIENT
  Age: 73 Year
  Sex: Female
  Weight: 60 kg

DRUGS (4)
  1. PACLITAXEL [Suspect]
     Active Substance: PACLITAXEL
     Indication: Ovarian cancer
     Route: 042
     Dates: start: 20240123, end: 20240123
  2. PREDNISONE [Concomitant]
     Active Substance: PREDNISONE
     Indication: Product used for unknown indication
     Dosage: 25 MG, 2 TABLETS AFTER BREAKFAST AND AFTER DINNER THE DAY BEFORE THERAPY AND 2 TABLETS AFTER BREA...
     Route: 048
     Dates: start: 20240122, end: 20240122
  3. FAMOTIDINE [Concomitant]
     Active Substance: FAMOTIDINE
     Indication: Product used for unknown indication
     Dosage: 40 MG, 1 TABLET THE EVENING BEFORE THERAPY.
     Route: 048
     Dates: start: 20240122, end: 20240122
  4. CETIRIZINE HYDROCHLORIDE [Concomitant]
     Active Substance: CETIRIZINE HYDROCHLORIDE
     Indication: Product used for unknown indication
     Dosage: 10 MG 1 TABLET THE EVENING BEFORE THERAPY AND 1 TABLET THE FOLLOWING MORNING
     Route: 048
     Dates: start: 20240122, end: 20240122

REACTIONS (4)
  - Spinal pain [Recovered/Resolved]
  - Oxygen saturation decreased [Recovered/Resolved]
  - Chest discomfort [Recovered/Resolved]
  - Dyspnoea [Recovered/Resolved]

NARRATIVE: CASE EVENT DATE: 20240123
